FAERS Safety Report 6346907-X (Version None)
Quarter: 2009Q3

REPORT INFORMATION
  Report Type: 
  Country: None (occurrence: None)
  Receive Date: 20090909
  Receipt Date: 20090909
  Transmission Date: 20100115
  Serious: Yes (Other)
  Sender: FDA-Public Use
  Company Number: None

PATIENT
  Age: 57 Year
  Sex: Female
  Weight: 49.8957 kg

DRUGS (1)
  1. MUCINEX [Suspect]
     Indication: CHEST DISCOMFORT
     Dosage: 600 MG ONCE/DAY PO
     Route: 048
     Dates: start: 20090903, end: 20090904

REACTIONS (5)
  - CHEST DISCOMFORT [None]
  - CONDITION AGGRAVATED [None]
  - FEELING ABNORMAL [None]
  - NAUSEA [None]
  - SIMILAR REACTION ON PREVIOUS EXPOSURE TO DRUG [None]
